FAERS Safety Report 17283039 (Version 1)
Quarter: 2020Q1

REPORT INFORMATION
  Report Type: Spontaneous
  Country: FR (occurrence: FR)
  Receive Date: 20200117
  Receipt Date: 20200117
  Transmission Date: 20200409
  Serious: Yes (Other)
  Sender: FDA-Public Use
  Company Number: FR-MYLANLABS-2020M1003983

PATIENT
  Age: 50 Year
  Sex: Female
  Weight: 86.5 kg

DRUGS (11)
  1. DOLIPRANE [Concomitant]
     Active Substance: ACETAMINOPHEN
     Dosage: UNK
  2. ELDISINE [Concomitant]
     Active Substance: VINDESINE SULFATE
  3. ZELITREX [Concomitant]
     Active Substance: VALACYCLOVIR HYDROCHLORIDE
  4. PREDNISONE. [Concomitant]
     Active Substance: PREDNISONE
  5. TRUXIMA [Concomitant]
     Active Substance: RITUXIMAB-ABBS
     Dosage: UNK
  6. DOXORUBICINE TEVA [Concomitant]
     Active Substance: DOXORUBICIN
  7. FOLINORAL [Concomitant]
     Active Substance: LEUCOVORIN CALCIUM
     Dosage: UNK
  8. FENOFIBRATE. [Concomitant]
     Active Substance: FENOFIBRATE
  9. ENDOXAN                            /00021101/ [Concomitant]
     Active Substance: CYCLOPHOSPHAMIDE
  10. METHOTREXATE MYLAN 100 MG/ML, SOLUTION FOR INJECTION [Suspect]
     Active Substance: METHOTREXATE
     Indication: B-CELL LYMPHOMA
     Dosage: 3000 MILLIGRAM/SQ. METER, CYCLE
     Route: 041
     Dates: start: 20191001
  11. BACTRIM [Concomitant]
     Active Substance: SULFAMETHOXAZOLE\TRIMETHOPRIM

REACTIONS (5)
  - Diarrhoea [Recovering/Resolving]
  - Anaemia [Recovering/Resolving]
  - Condition aggravated [Recovering/Resolving]
  - Renal failure [Recovering/Resolving]
  - Overdose [Recovered/Resolved]

NARRATIVE: CASE EVENT DATE: 20191002
